FAERS Safety Report 10544023 (Version 2)
Quarter: 2014Q4

REPORT INFORMATION
  Report Type: Spontaneous
  Country: US (occurrence: None)
  Receive Date: 20141010
  Receipt Date: 20141205
  Transmission Date: 20150529
  Serious: Yes (Hospitalization, Other)
  Sender: FDA-Public Use
  Company Number: 163-POMAL-14072868

PATIENT
  Age: 59 Year
  Sex: Male

DRUGS (1)
  1. POMALYST [Suspect]
     Active Substance: POMALIDOMIDE
     Indication: PLASMA CELL MYELOMA
     Dosage: DATE OF USE: 05/29/2014 - TEMPORARILY INTERRUPTED, 4 MG, 21 IN 28 D, PO?
     Route: 048
     Dates: start: 20140529

REACTIONS (4)
  - Full blood count decreased [None]
  - Pneumonia [None]
  - Febrile neutropenia [None]
  - White blood cell count decreased [None]

NARRATIVE: CASE EVENT DATE: 2014
